FAERS Safety Report 10724861 (Version 1)
Quarter: 2015Q1

REPORT INFORMATION
  Report Type: Spontaneous
  Country: IT (occurrence: IT)
  Receive Date: 20150120
  Receipt Date: 20150120
  Transmission Date: 20150721
  Serious: Yes (Other)
  Sender: FDA-Public Use
  Company Number: IT-PFIZER INC-2014329128

PATIENT
  Age: 75 Year
  Sex: Male

DRUGS (3)
  1. AZITHROMYCIN [Suspect]
     Active Substance: AZITHROMYCIN ANHYDROUS
     Indication: PHARYNGEAL INFLAMMATION
     Dosage: 500 MG, DAILY
     Route: 048
     Dates: start: 20141121, end: 20141122
  2. TAREG [Concomitant]
     Active Substance: VALSARTAN
     Dosage: UNK
  3. UROREC [Concomitant]
     Active Substance: SILODOSIN
     Dosage: UNK

REACTIONS (1)
  - Tachycardia [Unknown]

NARRATIVE: CASE EVENT DATE: 20141122
